FAERS Safety Report 14676049 (Version 1)
Quarter: 2018Q1

REPORT INFORMATION
  Report Type: Spontaneous
  Country: ES (occurrence: ES)
  Receive Date: 20180323
  Receipt Date: 20180323
  Transmission Date: 20180509
  Serious: Yes (Other)
  Sender: FDA-Public Use
  Company Number: ES-TEVA-2018-ES-870883

PATIENT
  Age: 36 Year
  Sex: Female
  Weight: 66.7 kg

DRUGS (6)
  1. ANTALGIN  550 MG [Concomitant]
     Route: 048
  2. LORAZEPAM (1864A) [Concomitant]
     Indication: ANXIETY
     Route: 048
  3. PAROXETINA (2586A) [Concomitant]
     Indication: DEPRESSION
     Route: 048
  4. CIDINE 1 MG/5 ML SOLUCION ORAL , 1 FRASCO DE 250 ML [Concomitant]
     Route: 048
  5. SEASONIQUE [Suspect]
     Active Substance: ETHINYL ESTRADIOL\LEVONORGESTREL
     Route: 048
     Dates: start: 20170301, end: 20180127
  6. DALACIN 10 MG SOLUCION CUTANEA , 1 FRASCO DE 30 ML [Concomitant]
     Route: 061

REACTIONS (2)
  - Lip oedema [Unknown]
  - Tongue oedema [Unknown]

NARRATIVE: CASE EVENT DATE: 20180119
